FAERS Safety Report 10515852 (Version 3)
Quarter: 2015Q2

REPORT INFORMATION
  Report Type: Spontaneous
  Country: US (occurrence: None)
  Receive Date: 20140926
  Receipt Date: 20150626
  Transmission Date: 20150821
  Serious: No
  Sender: FDA-Public Use
  Company Number: 1000070222

PATIENT
  Age: 59 Year
  Sex: Female

DRUGS (7)
  1. WELLBUTRIN [Concomitant]
     Active Substance: BUPROPION HYDROCHLORIDE
  2. DILANTIN [Concomitant]
     Active Substance: PHENYTOIN
  3. LINZESS [Suspect]
     Active Substance: LINACLOTIDE
     Indication: IRRITABLE BOWEL SYNDROME
     Dosage: 145 MCG (145 MCG, 1 IN 1 D), ORAL
     Route: 048
     Dates: start: 201406, end: 201410
  4. ACYCLOVIR (ACYCLOVIR) [Concomitant]
     Active Substance: ACYCLOVIR
  5. ACIPHEX [Concomitant]
     Active Substance: RABEPRAZOLE SODIUM
  6. LINZESS [Suspect]
     Active Substance: LINACLOTIDE
     Indication: CONSTIPATION
     Dosage: 145 MCG (145 MCG, 1 IN 1 D), ORAL
     Route: 048
     Dates: start: 201406, end: 201410
  7. MYSOLINE [Concomitant]
     Active Substance: PRIMIDONE

REACTIONS (6)
  - Large intestine polyp [None]
  - Drug effect decreased [None]
  - Abdominal pain [None]
  - Depression [None]
  - Intentional product misuse [None]
  - Irritable bowel syndrome [None]

NARRATIVE: CASE EVENT DATE: 201408
